FAERS Safety Report 4829290-8 (Version None)
Quarter: 2005Q4

REPORT INFORMATION
  Report Type: 
  Country: None (occurrence: None)
  Receive Date: 20051116
  Receipt Date: 20051111
  Transmission Date: 20060501
  Serious: Yes (Other)
  Sender: FDA-Public Use
  Company Number: GB-GLAXOSMITHKLINE-B0400191A

PATIENT
  Age: 13 Year
  Sex: Male

DRUGS (1)
  1. WELLVONE [Suspect]
     Dosage: 30MGK PER DAY

REACTIONS (3)
  - ANAEMIA [None]
  - BLOOD DISORDER [None]
  - HAEMATOLOGY TEST ABNORMAL [None]
